FAERS Safety Report 10874374 (Version 1)
Quarter: 2015Q1

REPORT INFORMATION
  Report Type: Spontaneous
  Country: US (occurrence: None)
  Receive Date: 20150223
  Receipt Date: 20150223
  Transmission Date: 20150721
  Serious: Yes (Other)
  Sender: FDA-Public Use
  Company Number: None

PATIENT
  Age: 58 Year
  Sex: Female
  Weight: 47.63 kg

DRUGS (27)
  1. ELIQUIS [Suspect]
     Active Substance: APIXABAN
     Indication: AORTIC THROMBOSIS
     Route: 048
     Dates: start: 20150218, end: 20150218
  2. SEROQUEL XR [Concomitant]
     Active Substance: QUETIAPINE FUMARATE
  3. MVI [Concomitant]
     Active Substance: VITAMINS
  4. L-METHYLFOLATE [Concomitant]
  5. ELIQUIS [Suspect]
     Active Substance: APIXABAN
     Indication: RENAL INFARCT
     Route: 048
     Dates: start: 20150218, end: 20150218
  6. LOSARTAN [Concomitant]
     Active Substance: LOSARTAN
  7. ACETAMINOPHEN AND CODEINE [Concomitant]
     Active Substance: ACETAMINOPHEN\CODEINE PHOSPHATE
  8. ASA [Concomitant]
     Active Substance: ASPIRIN
  9. ACETAMINOPHEN. [Concomitant]
     Active Substance: ACETAMINOPHEN
  10. STRATTERA [Concomitant]
     Active Substance: ATOMOXETINE HYDROCHLORIDE
  11. VIIBRYD [Concomitant]
     Active Substance: VILAZODONE HYDROCHLORIDE
  12. ATORVASTATIN [Concomitant]
     Active Substance: ATORVASTATIN
  13. ESZOPICLONE. [Concomitant]
     Active Substance: ESZOPICLONE
  14. OMEGA 3 [Concomitant]
     Active Substance: OMEGA-3 FATTY ACIDS
  15. IBUPROFEN. [Concomitant]
     Active Substance: IBUPROFEN
  16. COLACE [Concomitant]
     Active Substance: DOCUSATE SODIUM
  17. METFORMIN [Concomitant]
     Active Substance: METFORMIN HYDROCHLORIDE
  18. XARELTO [Concomitant]
     Active Substance: RIVAROXABAN
  19. METRONIC PARADIGM [Concomitant]
  20. ONDANSETRON [Concomitant]
     Active Substance: ONDANSETRON
  21. CA+D [Concomitant]
  22. DIPHENHYDRAMINE [Concomitant]
     Active Substance: DIPHENHYDRAMINE
  23. LEVOTHYROXINE [Concomitant]
     Active Substance: LEVOTHYROXINE
  24. LORSTADINE [Concomitant]
  25. NOVOLOG INSULIN [Concomitant]
  26. PROCHLORPERAZINE. [Concomitant]
     Active Substance: PROCHLORPERAZINE
  27. ALBUTEROL. [Concomitant]
     Active Substance: ALBUTEROL

REACTIONS (6)
  - Skin turgor decreased [None]
  - Urine output decreased [None]
  - Hyperhidrosis [None]
  - Blood pressure decreased [None]
  - Heart rate increased [None]
  - Dehydration [None]

NARRATIVE: CASE EVENT DATE: 20150218
